FAERS Safety Report 15484904 (Version 1)
Quarter: 2018Q4

REPORT INFORMATION
  Report Type: Spontaneous
  Country: US (occurrence: US)
  Receive Date: 20181010
  Receipt Date: 20181010
  Transmission Date: 20190205
  Serious: No
  Sender: FDA-Public Use
  Company Number: US-ROCHE-2109339

PATIENT
  Age: 77 Year
  Sex: Male

DRUGS (2)
  1. ANAKINRA [Concomitant]
     Active Substance: ANAKINRA
  2. VEMURAFENIB. [Suspect]
     Active Substance: VEMURAFENIB
     Indication: ERDHEIM-CHESTER DISEASE
     Route: 065

REACTIONS (1)
  - Fatigue [Unknown]
